FAERS Safety Report 6097416-7 (Version None)
Quarter: 2009Q1

REPORT INFORMATION
  Report Type: 
  Country: None (occurrence: None)
  Receive Date: 20090227
  Receipt Date: 20080327
  Transmission Date: 20090719
  Serious: No
  Sender: FDA-Public Use
  Company Number: A0717844A

PATIENT
  Age: 35 Year
  Sex: Male

DRUGS (2)
  1. IMITREX [Suspect]
     Indication: DRUG USE FOR UNKNOWN INDICATION
     Dosage: 6MG SINGLE DOSE
     Route: 058
     Dates: start: 20080326, end: 20080326
  2. NO CONCURRENT MEDICATION [Concomitant]

REACTIONS (3)
  - DRUG ADMINISTRATION ERROR [None]
  - FEELING ABNORMAL [None]
  - INJECTION SITE HAEMORRHAGE [None]
